FAERS Safety Report 22605800 (Version 1)
Quarter: 2023Q2

REPORT INFORMATION
  Report Type: Spontaneous
  Country: US (occurrence: None)
  Receive Date: 20230614
  Receipt Date: 20230614
  Transmission Date: 20230721
  Serious: Yes (Hospitalization, Other)
  Sender: FDA-Public Use
  Company Number: None

PATIENT
  Age: 50 Year
  Sex: Male

DRUGS (1)
  1. VIVITROL [Suspect]
     Active Substance: NALTREXONE
     Dosage: OTHER FREQUENCY : MONTHLY;?
     Route: 030
     Dates: start: 20210311, end: 20230601

REACTIONS (3)
  - Chest pain [None]
  - Nausea [None]
  - Seizure [None]
